FAERS Safety Report 7770638-2 (Version None)
Quarter: 2011Q3

REPORT INFORMATION
  Report Type: 
  Country: None (occurrence: None)
  Receive Date: 20110922
  Receipt Date: 20110920
  Transmission Date: 20111222
  Serious: Yes (Hospitalization, Other)
  Sender: FDA-Public Use
  Company Number: PHHY2011FR71107

PATIENT
  Sex: Female
  Weight: 62 kg

DRUGS (8)
  1. AFINITOR [Suspect]
     Dosage: 5 MG, DAILY
     Dates: start: 20110803
  2. CITALOPRAM HYDROBROMIDE [Concomitant]
     Indication: DEPRESSION
     Dates: start: 20110201
  3. AFINITOR [Suspect]
     Dosage: 5 MG, DAILY
  4. ESIDRIX [Concomitant]
     Indication: OEDEMA PERIPHERAL
     Dosage: 25 MG, QD
     Dates: start: 20110201
  5. AFINITOR [Suspect]
     Indication: PANCREATIC NEUROENDOCRINE TUMOUR
     Dosage: 10 MG, DAILY
     Dates: start: 20110603
  6. AFINITOR [Suspect]
     Dosage: 5 MG, ONCE EVERY 2 DAYS
     Dates: start: 20110805
  7. CANDESARTAN CILEXETIL [Concomitant]
     Indication: HYPERTENSION
     Dates: start: 20101201
  8. LYRICA [Concomitant]
     Indication: PAIN
     Dosage: 75 MG, BID
     Dates: start: 20110201

REACTIONS (7)
  - HAEMATOTOXICITY [None]
  - BURSITIS [None]
  - NEUTROPHIL COUNT DECREASED [None]
  - JOINT SWELLING [None]
  - OSTEONECROSIS [None]
  - OSTEOARTHRITIS [None]
  - FEBRILE BONE MARROW APLASIA [None]
